FAERS Safety Report 7965646-2 (Version None)
Quarter: 2011Q4

REPORT INFORMATION
  Report Type: 
  Country: None (occurrence: None)
  Receive Date: 20111208
  Receipt Date: 20111128
  Transmission Date: 20120403
  Serious: Yes (Other)
  Sender: FDA-Public Use
  Company Number: CA-JNJFOC-20111201950

PATIENT
  Sex: Female
  Weight: 140.16 kg

DRUGS (3)
  1. REMICADE [Suspect]
     Indication: COLITIS ULCERATIVE
     Dates: start: 20111130
  2. REMICADE [Suspect]
     Dates: start: 20080101, end: 20090101
  3. CORTICOSTEROIDS [Concomitant]

REACTIONS (8)
  - HEADACHE [None]
  - MUSCLE TWITCHING [None]
  - INTESTINAL OPERATION [None]
  - CHEST DISCOMFORT [None]
  - INFUSION RELATED REACTION [None]
  - DYSPNOEA [None]
  - COUGH [None]
  - ARTHRALGIA [None]
